FAERS Safety Report 5881386-8 (Version None)
Quarter: 2008Q3

REPORT INFORMATION
  Report Type: 
  Country: None (occurrence: None)
  Receive Date: 20080912
  Receipt Date: 20080627
  Transmission Date: 20090109
  Serious: No
  Sender: FDA-Public Use
  Company Number: US-ABBOTT-08P-163-0460063-00

PATIENT
  Sex: Male
  Weight: 99.88 kg

DRUGS (4)
  1. HUMIRA [Suspect]
     Indication: PSORIASIS
     Dosage: 40 MG; 2 INJECTIONS ON DAY 1
     Route: 058
     Dates: start: 20080624, end: 20080624
  2. HUMIRA [Suspect]
     Dosage: 40 MG; 1 INJECTION ON DAY 8
     Route: 058
  3. HUMIRA [Suspect]
     Dosage: 40 MG; 1 INJECTION ON DAY 22
     Route: 058
  4. HUMIRA [Suspect]
     Route: 058

REACTIONS (1)
  - INJECTION SITE PAIN [None]
